FAERS Safety Report 18521792 (Version 1)
Quarter: 2020Q4

REPORT INFORMATION
  Report Type: Other
  Country: CA (occurrence: CA)
  Receive Date: 20201119
  Receipt Date: 20201119
  Transmission Date: 20210114
  Serious: Yes (Other)
  Sender: FDA-Public Use
  Company Number: CA-APOTEX-2020AP021663

PATIENT
  Age: 74 Year
  Sex: Female

DRUGS (4)
  1. REVOLADE [Suspect]
     Active Substance: ELTROMBOPAG
     Indication: IMMUNE THROMBOCYTOPENIA
     Dosage: 50 MILLIGRAM
     Route: 048
  2. EPOETIN ALFA [Concomitant]
     Active Substance: ERYTHROPOIETIN
     Indication: PRODUCT USED FOR UNKNOWN INDICATION
     Dosage: UNK
     Route: 065
  3. CYCLOSPORINE. [Suspect]
     Active Substance: CYCLOSPORINE
     Indication: APLASTIC ANAEMIA
     Dosage: 50 MILLIGRAM, BID
     Route: 048
  4. REVOLADE [Suspect]
     Active Substance: ELTROMBOPAG
     Indication: APLASTIC ANAEMIA
     Dosage: 50 MILLIGRAM, QD
     Route: 048

REACTIONS (12)
  - Platelet count decreased [Unknown]
  - Contusion [Unknown]
  - Drug level decreased [Unknown]
  - Malaise [Unknown]
  - Renal mass [Unknown]
  - Burning sensation [Unknown]
  - Lymphocyte count decreased [Unknown]
  - Headache [Unknown]
  - Haemoglobin decreased [Unknown]
  - Stress [Unknown]
  - White blood cell count decreased [Unknown]
  - Cough [Unknown]
